FAERS Safety Report 9511536 (Version 1)
Quarter: 2013Q3

REPORT INFORMATION
  Report Type: Spontaneous
  Country: US (occurrence: None)
  Receive Date: 20130909
  Receipt Date: 20130909
  Transmission Date: 20140515
  Serious: Yes (Disabling)
  Sender: FDA-Public Use
  Company Number: None

PATIENT
  Age: 66 Year
  Sex: Male
  Weight: 95.26 kg

DRUGS (1)
  1. LEVOFLOXACIN [Suspect]
     Indication: PROSTATE INFECTION
     Dosage: 1 ONCE DAILY TAKEN BY MOUTH
     Route: 048
     Dates: start: 20130810, end: 20130812

REACTIONS (4)
  - Tendon pain [None]
  - Gait disturbance [None]
  - Pain [None]
  - Diarrhoea [None]
